FAERS Safety Report 7145795-1 (Version None)
Quarter: 2010Q4

REPORT INFORMATION
  Report Type: 
  Country: None (occurrence: None)
  Receive Date: 20101208
  Receipt Date: 20101130
  Transmission Date: 20110411
  Serious: Yes (Death)
  Sender: FDA-Public Use
  Company Number: A0897390A

PATIENT
  Sex: Male

DRUGS (2)
  1. PROMACTA [Suspect]
     Indication: MYELOPROLIFERATIVE DISORDER
     Dosage: 50MG PER DAY
     Dates: start: 20100630, end: 20100820
  2. CORTICOSTEROIDS [Concomitant]

REACTIONS (1)
  - DEATH [None]
